FAERS Safety Report 21513831 (Version 1)
Quarter: 2022Q4

REPORT INFORMATION
  Report Type: Report from Study
  Country: CA (occurrence: CA)
  Receive Date: 20221027
  Receipt Date: 20221027
  Transmission Date: 20230113
  Serious: Yes (Other)
  Sender: FDA-Public Use
  Company Number: CA-NOVARTISPH-NVSC2022CA096804

PATIENT
  Age: 31 Year
  Sex: Female

DRUGS (2)
  1. KESIMPTA [Suspect]
     Active Substance: OFATUMUMAB
     Indication: Relapsing-remitting multiple sclerosis
     Dosage: UNK
     Route: 058
     Dates: start: 20220422
  2. KESIMPTA [Suspect]
     Active Substance: OFATUMUMAB
     Dosage: UNK
     Route: 058
     Dates: start: 20220912

REACTIONS (15)
  - Multiple sclerosis pseudo relapse [Unknown]
  - Respiratory tract infection [Unknown]
  - Psoriasis [Unknown]
  - Pruritus [Unknown]
  - Swelling [Unknown]
  - Rash [Unknown]
  - Inflammation [Unknown]
  - Urinary tract infection [Unknown]
  - Pyrexia [Unknown]
  - Chills [Unknown]
  - Nasopharyngitis [Unknown]
  - Dizziness [Unknown]
  - Balance disorder [Unknown]
  - Stress [Unknown]
  - Insomnia [Unknown]

NARRATIVE: CASE EVENT DATE: 20220808
